FAERS Safety Report 19195565 (Version 4)
Quarter: 2022Q4

REPORT INFORMATION
  Report Type: Spontaneous
  Country: US (occurrence: US)
  Receive Date: 20210429
  Receipt Date: 20221004
  Transmission Date: 20230112
  Serious: No
  Sender: FDA-Public Use
  Company Number: US-PFIZER INC-2021367772

PATIENT
  Age: 52 Year
  Sex: Female

DRUGS (2)
  1. XELJANZ XR [Suspect]
     Active Substance: TOFACITINIB CITRATE
     Indication: Rheumatoid arthritis
     Dosage: 11 MG, 1X/DAY
     Route: 048
     Dates: start: 202103
  2. PLAQUENIL [Concomitant]
     Active Substance: HYDROXYCHLOROQUINE SULFATE
     Dosage: UNK

REACTIONS (8)
  - Product dose omission in error [Unknown]
  - COVID-19 [Recovered/Resolved]
  - Pain [Recovered/Resolved]
  - Musculoskeletal stiffness [Recovering/Resolving]
  - Sensitivity to weather change [Unknown]
  - Rash [Not Recovered/Not Resolved]
  - Pruritus [Unknown]
  - Abdominal discomfort [Unknown]

NARRATIVE: CASE EVENT DATE: 20210331
